FAERS Safety Report 4989222-9 (Version None)
Quarter: 2006Q2

REPORT INFORMATION
  Report Type: 
  Country: None (occurrence: None)
  Receive Date: 20060425
  Receipt Date: 20060410
  Transmission Date: 20061013
  Serious: Yes (Other)
  Sender: FDA-Public Use
  Company Number: 2006049863

PATIENT
  Age: 49 Year
  Sex: Male
  Weight: 80.7403 kg

DRUGS (2)
  1. SUTENT [Suspect]
     Indication: RENAL CELL CARCINOMA STAGE UNSPECIFIED
     Dosage: 50  MG (50 MG, DAILY INTERVAL: EVERY DAY), ORAL
     Route: 048
     Dates: start: 20060227
  2. BENICAR [Concomitant]

REACTIONS (22)
  - AGEUSIA [None]
  - COAGULOPATHY [None]
  - COUGH [None]
  - DECREASED APPETITE [None]
  - DRUG EFFECT DECREASED [None]
  - DRUG HYPERSENSITIVITY [None]
  - DRY MOUTH [None]
  - EPISTAXIS [None]
  - FATIGUE [None]
  - FLATULENCE [None]
  - GASTROOESOPHAGEAL REFLUX DISEASE [None]
  - INSOMNIA [None]
  - MYALGIA [None]
  - NAUSEA [None]
  - ORAL DISCOMFORT [None]
  - ORAL PAIN [None]
  - PAIN [None]
  - PLATELET COUNT DECREASED [None]
  - PNEUMONIA [None]
  - SENSITIVITY OF TEETH [None]
  - SKIN DISCOLOURATION [None]
  - WEIGHT DECREASED [None]
